FAERS Safety Report 7833679-2 (Version None)
Quarter: 2011Q4

REPORT INFORMATION
  Report Type: 
  Country: None (occurrence: None)
  Receive Date: 20111024
  Receipt Date: 20111012
  Transmission Date: 20120403
  Serious: Yes (Hospitalization)
  Sender: FDA-Public Use
  Company Number: US-CUBIST-2011S1000685

PATIENT
  Age: 37 Year
  Sex: Female

DRUGS (3)
  1. CUBICIN [Suspect]
     Indication: OSTEOMYELITIS
     Dates: start: 20110918
  2. CUBICIN [Suspect]
     Indication: CELLULITIS
     Dates: start: 20110918
  3. ZOSYN [Concomitant]
     Indication: PRODUCT USED FOR UNKNOWN INDICATION

REACTIONS (5)
  - ANAEMIA [None]
  - VOMITING [None]
  - DIARRHOEA [None]
  - RASH MORBILLIFORM [None]
  - PAIN [None]
